FAERS Safety Report 15351427 (Version 2)
Quarter: 2019Q1

REPORT INFORMATION
  Report Type: Report from Study
  Country: RU (occurrence: RU)
  Receive Date: 20180905
  Receipt Date: 20190311
  Transmission Date: 20190417
  Serious: Yes (Hospitalization)
  Sender: FDA-Public Use
  Company Number: RU-EISAI MEDICAL RESEARCH-EC-2018-044727

PATIENT
  Age: 53 Year
  Sex: Male
  Weight: 99.5 kg

DRUGS (13)
  1. EVEROLIMUS. [Suspect]
     Active Substance: EVEROLIMUS
     Route: 048
     Dates: start: 20180831, end: 20180903
  2. LENVATINIB [Suspect]
     Active Substance: LENVATINIB
     Route: 048
     Dates: start: 20180831, end: 20180920
  3. PLAVIX [Concomitant]
     Active Substance: CLOPIDOGREL BISULFATE
  4. LENVATINIB [Suspect]
     Active Substance: LENVATINIB
     Indication: RENAL CANCER METASTATIC
     Route: 048
     Dates: start: 20180629, end: 20180830
  5. LENVATINIB [Suspect]
     Active Substance: LENVATINIB
     Route: 048
     Dates: start: 20180921, end: 20181101
  6. LENVATINIB [Suspect]
     Active Substance: LENVATINIB
     Route: 048
     Dates: start: 20181102
  7. CARDIOMAGNESIUM [Concomitant]
  8. PERINEVA [Concomitant]
     Active Substance: PERINDOPRIL ERBUMINE
  9. ATORIS [Concomitant]
     Active Substance: ATORVASTATIN CALCIUM
  10. EVEROLIMUS. [Suspect]
     Active Substance: EVEROLIMUS
     Indication: RENAL CANCER METASTATIC
     Route: 048
     Dates: start: 20180629, end: 20180830
  11. EVEROLIMUS. [Suspect]
     Active Substance: EVEROLIMUS
     Route: 048
     Dates: start: 20180906
  12. ENALAPRIL [Concomitant]
     Active Substance: ENALAPRIL
  13. METOPROLOL. [Concomitant]
     Active Substance: METOPROLOL

REACTIONS (2)
  - Proctitis [Recovered/Resolved]
  - Angina unstable [Recovered/Resolved]

NARRATIVE: CASE EVENT DATE: 20180821
